FAERS Safety Report 22217722 (Version 3)
Quarter: 2023Q2

REPORT INFORMATION
  Report Type: Report from Study
  Country: BR (occurrence: BR)
  Receive Date: 20230417
  Receipt Date: 20230519
  Transmission Date: 20230721
  Serious: Yes (Other)
  Sender: FDA-Public Use
  Company Number: BR-002147023-NVSC2023BR086731

PATIENT
  Sex: Female
  Weight: 69.7 kg

DRUGS (3)
  1. KISQALI [Suspect]
     Active Substance: RIBOCICLIB
     Indication: Breast cancer
     Dosage: UNK
     Route: 065
  2. AMOXICILLIN [Suspect]
     Active Substance: AMOXICILLIN
     Indication: Product used for unknown indication
     Dosage: UNK (AT THE END OF THE FIRST BOX OF KISQALI)
     Route: 065
  3. CEPHALEXIN [Concomitant]
     Active Substance: CEPHALEXIN
     Indication: Product used for unknown indication
     Dosage: UNK (STARTED PRIOR TO KISQALI TO AFTER 16 DAYS)
     Route: 065

REACTIONS (7)
  - Cellulitis [Unknown]
  - Cough [Recovering/Resolving]
  - Dysbiosis [Recovering/Resolving]
  - Nausea [Unknown]
  - Gastrointestinal bacterial infection [Unknown]
  - Diarrhoea [Recovering/Resolving]
  - Malaise [Unknown]
